FAERS Safety Report 8321892-X (Version None)
Quarter: 2012Q2

REPORT INFORMATION
  Report Type: 
  Country: None (occurrence: None)
  Receive Date: 20120430
  Receipt Date: 20120423
  Transmission Date: 20120825
  Serious: Yes (Other)
  Sender: FDA-Public Use
  Company Number: US-ASTRAZENECA-2012SE26356

PATIENT
  Age: 54 Year
  Sex: Female

DRUGS (2)
  1. PAXIL [Suspect]
     Route: 065
  2. ARIMIDEX [Suspect]
     Route: 048

REACTIONS (2)
  - ILEUS [None]
  - NEUROPATHY PERIPHERAL [None]
